FAERS Safety Report 24299489 (Version 2)
Quarter: 2024Q3

REPORT INFORMATION
  Report Type: Report from Study
  Country: AU (occurrence: AU)
  Receive Date: 20240909
  Receipt Date: 20240923
  Transmission Date: 20241016
  Serious: Yes (Hospitalization, Other)
  Sender: NOVARTIS
  Company Number: AU-002147023-NVSC2024AU178791

PATIENT
  Age: 31 Year
  Sex: Male

DRUGS (2)
  1. KESIMPTA [Suspect]
     Active Substance: OFATUMUMAB
     Indication: Relapsing-remitting multiple sclerosis
     Dosage: 20 MG, QMO
     Route: 058
     Dates: start: 20240409
  2. KESIMPTA [Suspect]
     Active Substance: OFATUMUMAB
     Dosage: 4 WEEKLY
     Route: 042
     Dates: end: 202406

REACTIONS (2)
  - Hepatitis acute [Recovered/Resolved]
  - Off label use [Unknown]

NARRATIVE: CASE EVENT DATE: 20240625
